FAERS Safety Report 7353323-0 (Version None)
Quarter: 2011Q1

REPORT INFORMATION
  Report Type: 
  Country: None (occurrence: None)
  Receive Date: 20110315
  Receipt Date: 20110307
  Transmission Date: 20110831
  Serious: Yes (Other)
  Sender: FDA-Public Use
  Company Number: JP-MERCK-1101USA02259

PATIENT
  Age: 38 Year
  Sex: Female

DRUGS (4)
  1. LEVEMIR [Concomitant]
     Route: 058
  2. DECADRON [Suspect]
     Route: 048
     Dates: start: 20100217, end: 20100218
  3. HUMALOG [Concomitant]
     Route: 058
  4. DECADRON [Suspect]
     Indication: ENDOCRINE TEST
     Route: 048
     Dates: start: 20100216, end: 20100217

REACTIONS (1)
  - HYPERTENSIVE CRISIS [None]
